FAERS Safety Report 6982091-7 (Version None)
Quarter: 2010Q3

REPORT INFORMATION
  Report Type: 
  Country: None (occurrence: None)
  Receive Date: 20100909
  Receipt Date: 20100825
  Transmission Date: 20110219
  Serious: Yes (Other)
  Sender: FDA-Public Use
  Company Number: GB-DEXPHARM-20101350

PATIENT
  Age: 38 Year
  Sex: Female

DRUGS (4)
  1. OMEPRAZOLE [Suspect]
     Dosage: 20 MG MILLGRAM(S) SEP. DOSAGES / INTERVAL: 1 IN 1 DAY ORAL
     Route: 048
     Dates: start: 20090404, end: 20090827
  2. LANSOPRAZOLE [Suspect]
     Indication: DYSPEPSIA
     Dosage: 30 MG MILLIGRAM(S) ORAL
     Route: 048
     Dates: start: 20030717, end: 20090404
  3. CYCLIZINE [Concomitant]
  4. GABAPENTIN [Concomitant]

REACTIONS (14)
  - CONVULSION [None]
  - DRUG EXPOSURE DURING PREGNANCY [None]
  - DYSPEPSIA [None]
  - HYPOCALCAEMIA [None]
  - HYPOKALAEMIA [None]
  - HYPOMAGNESAEMIA [None]
  - HYPONATRAEMIA [None]
  - INTRA-UTERINE DEATH [None]
  - LETHARGY [None]
  - NAUSEA [None]
  - OBSTRUCTION GASTRIC [None]
  - ODYNOPHAGIA [None]
  - PANCREATITIS [None]
  - VOMITING [None]
